FAERS Safety Report 15810343 (Version 1)
Quarter: 2019Q1

REPORT INFORMATION
  Report Type: Spontaneous
  Country: US (occurrence: US)
  Receive Date: 20190111
  Receipt Date: 20190111
  Transmission Date: 20190417
  Serious: Yes (Other)
  Sender: FDA-Public Use
  Company Number: US-ROCHE-2195714

PATIENT
  Age: 38 Year
  Sex: Male

DRUGS (7)
  1. PREDNISONE. [Concomitant]
     Active Substance: PREDNISONE
     Route: 065
  2. PREDNISONE. [Concomitant]
     Active Substance: PREDNISONE
     Indication: IMMUNE-MEDIATED NECROTISING MYOPATHY
     Route: 065
  3. MYCOPHENOLATE MOFETIL. [Concomitant]
     Active Substance: MYCOPHENOLATE MOFETIL
     Indication: IMMUNE-MEDIATED NECROTISING MYOPATHY
     Route: 065
  4. METHOTREXATE. [Concomitant]
     Active Substance: METHOTREXATE
     Indication: IMMUNE-MEDIATED NECROTISING MYOPATHY
     Route: 065
  5. CYCLOPHOSPHAMIDE. [Concomitant]
     Active Substance: CYCLOPHOSPHAMIDE
     Indication: IMMUNE-MEDIATED NECROTISING MYOPATHY
     Dosage: 50 MG/KG OF IDEAL BODY WEIGHT
     Route: 042
     Dates: start: 201109
  6. PREDNISONE. [Concomitant]
     Active Substance: PREDNISONE
     Route: 065
  7. RITUXIMAB. [Suspect]
     Active Substance: RITUXIMAB
     Indication: IMMUNE-MEDIATED NECROTISING MYOPATHY
     Dosage: 2 DOSES
     Route: 065

REACTIONS (1)
  - Anaphylactic reaction [Unknown]
